FAERS Safety Report 8887630 (Version 1)
Quarter: 2012Q4

REPORT INFORMATION
  Report Type: Spontaneous
  Country: US (occurrence: None)
  Receive Date: 20121101
  Receipt Date: 20121101
  Transmission Date: 20130627
  Serious: No
  Sender: FDA-Public Use
  Company Number: None

PATIENT
  Age: 50 Year
  Sex: Female

DRUGS (1)
  1. ABILIFY [Suspect]
     Indication: MAJOR DEPRESSIVE DISORDER NOS
     Dosage: 0.5 tablet qhs po
     Route: 048
     Dates: start: 20121002, end: 20121024

REACTIONS (5)
  - Malaise [None]
  - Hallucination [None]
  - Condition aggravated [None]
  - Ear discomfort [None]
  - Anxiety [None]
